FAERS Safety Report 7635670-8 (Version None)
Quarter: 2011Q3

REPORT INFORMATION
  Report Type: 
  Country: None (occurrence: None)
  Receive Date: 20110726
  Receipt Date: 20110713
  Transmission Date: 20111222
  Serious: Yes (Hospitalization)
  Sender: FDA-Public Use
  Company Number: US-UCBSA-037235

PATIENT
  Sex: Female
  Weight: 45.4 kg

DRUGS (10)
  1. CIMZIA [Suspect]
     Indication: CROHN'S DISEASE
     Route: 058
     Dates: start: 20110302
  2. ACIDOPHILUS [Concomitant]
     Indication: CROHN'S DISEASE
  3. FERROUS SULFATE TAB [Concomitant]
     Indication: CROHN'S DISEASE
  4. MERCAPTOPURINE [Concomitant]
     Dates: start: 19990101
  5. CALCIUM ACETATE [Concomitant]
     Indication: CROHN'S DISEASE
  6. MERCAPTOPURINE [Concomitant]
     Indication: CROHN'S DISEASE
     Dates: start: 19920101, end: 19920101
  7. MAGNESIUM [Concomitant]
     Indication: CROHN'S DISEASE
  8. VITAMIN B-12 [Concomitant]
     Indication: CROHN'S DISEASE
  9. PEPCID [Concomitant]
     Indication: CROHN'S DISEASE
  10. NEXIUM [Concomitant]
     Indication: CROHN'S DISEASE

REACTIONS (1)
  - CELLULITIS STAPHYLOCOCCAL [None]
